FAERS Safety Report 5278734-9 (Version None)
Quarter: 2007Q1

REPORT INFORMATION
  Report Type: 
  Country: None (occurrence: None)
  Receive Date: 20070328
  Receipt Date: 20070326
  Transmission Date: 20070707
  Serious: Yes (Death, Hospitalization)
  Sender: FDA-Public Use
  Company Number: US-SANOFI-SYNTHELABO-F01200700295

PATIENT
  Sex: Male

DRUGS (11)
  1. CAPECITABINE [Suspect]
     Dosage: D1-8
     Route: 048
  2. BEVACIZUMAB [Suspect]
     Route: 042
  3. OXALIPLATIN [Suspect]
     Indication: COLORECTAL CANCER METASTATIC
     Route: 042
  4. METOPROLOL SUCCINATE [Concomitant]
     Dosage: UNK
     Route: 065
     Dates: start: 20061127
  5. TRIAMTERENE [Concomitant]
  6. CELEBREX [Concomitant]
     Dosage: UNK
     Route: 065
     Dates: start: 20070219
  7. LOMOTIL [Concomitant]
     Dosage: UNK
     Route: 065
     Dates: start: 20070219
  8. BENADRYL [Concomitant]
     Dosage: UNK
     Route: 065
     Dates: start: 20070205
  9. ASPIRIN [Concomitant]
     Dosage: UNK
     Route: 065
     Dates: start: 20061127
  10. METFORMIN HCL [Concomitant]
     Dosage: UNK
     Route: 065
     Dates: start: 20061108
  11. VYTORIN [Concomitant]
     Dosage: UNK
     Route: 065
     Dates: start: 20061003

REACTIONS (1)
  - SHOCK [None]
